FAERS Safety Report 11219405 (Version 1)
Quarter: 2015Q2

REPORT INFORMATION
  Report Type: Spontaneous
  Country: US (occurrence: US)
  Receive Date: 20150625
  Receipt Date: 20150625
  Transmission Date: 20150821
  Serious: No
  Sender: FDA-Public Use
  Company Number: US-ELI_LILLY_AND_COMPANY-US201506001381

PATIENT
  Age: 83 Year
  Sex: Male

DRUGS (1)
  1. ADCIRCA [Suspect]
     Active Substance: TADALAFIL
     Indication: PULMONARY HYPERTENSION
     Dosage: UNK, UNKNOWN
     Route: 065
     Dates: start: 20150528, end: 20150530

REACTIONS (2)
  - Neck pain [Unknown]
  - Headache [Unknown]

NARRATIVE: CASE EVENT DATE: 20150528
